FAERS Safety Report 17826637 (Version 1)
Quarter: 2020Q2

REPORT INFORMATION
  Report Type: Spontaneous
  Country: BE (occurrence: BE)
  Receive Date: 20200527
  Receipt Date: 20200527
  Transmission Date: 20200714
  Serious: Yes (Other)
  Sender: FDA-Public Use
  Company Number: BE-SUN PHARMACEUTICAL INDUSTRIES LTD-2020RR-246869

PATIENT
  Age: 49 Year
  Sex: Male

DRUGS (5)
  1. NIVOLUMAB [Suspect]
     Active Substance: NIVOLUMAB
     Indication: EWING^S SARCOMA METASTATIC
     Dosage: 3 MILLIGRAM/KILOGRAM, 1 DOSE/3 WEEKS
  2. IPILIMUMAB [Suspect]
     Active Substance: IPILIMUMAB
     Indication: EWING^S SARCOMA METASTATIC
     Dosage: 1 MILLIGRAM/KILOGRAM, 1 DOSE/3 WEEKS
     Route: 065
  3. DOCETAXEL. [Suspect]
     Active Substance: DOCETAXEL
     Indication: EWING^S SARCOMA METASTATIC
     Dosage: 60 MILLIGRAM/SQ. METER, THREE CYCLES, ON DAYS 1 AND 8 IN A 3-WEEKLY SCHEDULE
     Route: 065
  4. GEMCITABINE. [Suspect]
     Active Substance: GEMCITABINE
     Indication: EWING^S SARCOMA METASTATIC
     Dosage: 900 MILLIGRAM/SQ. METER ON DAYS 1 AND 8, THREE CYCLES, IN A 3-WEEKLY SCHEDULE
     Route: 065
  5. TRABECTIDINE [Suspect]
     Active Substance: TRABECTEDIN
     Indication: EWING^S SARCOMA METASTATIC
     Dosage: 1.5 MILLIGRAM/SQ. METER, ON A 3-WEEKLY SCHEDULE
     Route: 065

REACTIONS (1)
  - Malignant neoplasm progression [Unknown]
